FAERS Safety Report 8420452-X (Version None)
Quarter: 2012Q2

REPORT INFORMATION
  Report Type: 
  Country: None (occurrence: None)
  Receive Date: 20120608
  Receipt Date: 20120604
  Transmission Date: 20120825
  Serious: Yes (Death, Hospitalization, Other)
  Sender: FDA-Public Use
  Company Number: US-AMGEN-USASP2012025171

PATIENT
  Age: 58 Year
  Sex: Female

DRUGS (1)
  1. VECTIBIX [Suspect]
     Indication: RECTAL CANCER METASTATIC
     Dosage: UNK

REACTIONS (8)
  - LYMPHANGIOSIS CARCINOMATOSA [None]
  - LUNG NEOPLASM [None]
  - RASH [None]
  - DYSPNOEA [None]
  - GENERAL PHYSICAL HEALTH DETERIORATION [None]
  - RESPIRATORY FAILURE [None]
  - COUGH [None]
  - DEATH [None]
